FAERS Safety Report 11401435 (Version 3)
Quarter: 2015Q3

REPORT INFORMATION
  Report Type: Spontaneous
  Country: CZ (occurrence: CZ)
  Receive Date: 20150820
  Receipt Date: 20150828
  Transmission Date: 20151125
  Serious: Yes (Other)
  Sender: FDA-Public Use
  Company Number: PHHY2015CZ096329

PATIENT
  Age: 63 Year
  Sex: Female

DRUGS (12)
  1. FENTANYL. [Concomitant]
     Active Substance: FENTANYL
     Dosage: 25 UG, QH
     Route: 062
  2. TAMOXIFEN [Concomitant]
     Active Substance: TAMOXIFEN
     Indication: METASTASES TO BONE
  3. BRUFEN ^BOOTS^ [Concomitant]
     Active Substance: IBUPROFEN
     Indication: SPINAL PAIN
     Dosage: 400 MG, UNK
     Route: 048
  4. SEVREDOL [Concomitant]
     Active Substance: MORPHINE
     Indication: PAIN
     Route: 065
  5. BRUFEN ^BOOTS^ [Concomitant]
     Active Substance: IBUPROFEN
     Indication: ARTHRALGIA
  6. ZOMETA [Suspect]
     Active Substance: ZOLEDRONIC ACID
     Indication: METASTASES TO BONE
     Dosage: 4 MG, EVERY 4 WEEKS
     Route: 042
     Dates: start: 201208
  7. ZOMETA [Suspect]
     Active Substance: ZOLEDRONIC ACID
     Indication: INVASIVE DUCTAL BREAST CARCINOMA
  8. FENTANYL. [Concomitant]
     Active Substance: FENTANYL
     Indication: SPINAL PAIN
     Dosage: 12 UG, QH
     Route: 062
  9. IBALGIN [Concomitant]
     Active Substance: IBUPROFEN
     Indication: SPINAL PAIN
     Route: 065
  10. IBALGIN [Concomitant]
     Active Substance: IBUPROFEN
     Indication: ARTHRALGIA
  11. TAMOXIFEN [Concomitant]
     Active Substance: TAMOXIFEN
     Indication: INVASIVE DUCTAL BREAST CARCINOMA
     Dosage: 20 MG, QD
     Route: 065
  12. FENTANYL. [Concomitant]
     Active Substance: FENTANYL
     Indication: ARTHRALGIA
     Dosage: 75 UG, QH
     Route: 062

REACTIONS (4)
  - Femur fracture [Recovering/Resolving]
  - Metastases to bone [Unknown]
  - Pathological fracture [Unknown]
  - Disease progression [Unknown]

NARRATIVE: CASE EVENT DATE: 20120910
